FAERS Safety Report 17687185 (Version 4)
Quarter: 2020Q2

REPORT INFORMATION
  Report Type: Spontaneous
  Country: IT (occurrence: IT)
  Receive Date: 20200421
  Receipt Date: 20200622
  Transmission Date: 20200714
  Serious: Yes (Other)
  Sender: FDA-Public Use
  Company Number: IT-ALEXION-A202005468

PATIENT
  Age: 82 Year
  Sex: Female

DRUGS (8)
  1. SOLIRIS [Suspect]
     Active Substance: ECULIZUMAB
     Indication: COVID-19 TREATMENT
     Dosage: 900 MG, QW
     Route: 042
  2. RITONAVIR. [Concomitant]
     Active Substance: RITONAVIR
     Indication: COVID-19 TREATMENT
     Dosage: 200 MG, QD
     Route: 065
  3. HYDROXYCHLOROQUINE [Concomitant]
     Active Substance: HYDROXYCHLOROQUINE
     Indication: COVID-19 TREATMENT
     Dosage: 400 MG, QD
     Route: 065
  4. LOPINAVIR [Concomitant]
     Active Substance: LOPINAVIR
     Indication: COVID-19 TREATMENT
     Dosage: 800 MG, QD
     Route: 065
  5. VITAMIN C [Concomitant]
     Active Substance: ASCORBIC ACID
     Indication: COVID-19 TREATMENT
     Dosage: 6 G, QD, FOR 4 DAYS
     Route: 065
  6. SOLIRIS [Suspect]
     Active Substance: ECULIZUMAB
     Indication: OFF LABEL USE
  7. ENOXAPARIN [Concomitant]
     Active Substance: ENOXAPARIN
     Indication: COVID-19 TREATMENT
     Dosage: 4000 IU, QD
     Route: 058
  8. CEFTRIAXONE. [Concomitant]
     Active Substance: CEFTRIAXONE
     Indication: COVID-19 TREATMENT
     Dosage: 2 G, QD
     Route: 042

REACTIONS (5)
  - Condition aggravated [Unknown]
  - Atelectasis [Unknown]
  - Lung consolidation [Unknown]
  - COVID-19 pneumonia [Unknown]
  - Off label use [Unknown]
